FAERS Safety Report 21538903 (Version 2)
Quarter: 2023Q1

REPORT INFORMATION
  Report Type: Spontaneous
  Country: BR (occurrence: BR)
  Receive Date: 20221102
  Receipt Date: 20230206
  Transmission Date: 20230418
  Serious: Yes (Other)
  Sender: FDA-Public Use
  Company Number: BR-SUN PHARMACEUTICAL INDUSTRIES LTD-2022R1-357377

PATIENT
  Age: 45 Year
  Sex: Female

DRUGS (1)
  1. PREDNISONE [Suspect]
     Active Substance: PREDNISONE
     Indication: Type IV hypersensitivity reaction
     Dosage: UNK/LOW DOSE
     Route: 065

REACTIONS (1)
  - Pituitary-dependent Cushing^s syndrome [Unknown]
